FAERS Safety Report 10177675 (Version 2)
Quarter: 2014Q2

REPORT INFORMATION
  Report Type: Spontaneous
  Country: US (occurrence: US)
  Receive Date: 20140516
  Receipt Date: 20140603
  Transmission Date: 20141212
  Serious: No
  Sender: FDA-Public Use
  Company Number: US-009507513-1405USA000761

PATIENT
  Age: 86 Year
  Sex: Female

DRUGS (2)
  1. OXYTROL FOR WOMEN [Suspect]
     Indication: HYPERTONIC BLADDER
     Dosage: UNK, UNKNOWN
     Route: 062
     Dates: start: 201404, end: 201405
  2. VITAMINS (UNSPECIFIED) [Concomitant]
     Indication: HYPERTONIC BLADDER
     Dosage: UNK, UNKNOWN

REACTIONS (2)
  - Joint swelling [Unknown]
  - Product packaging issue [Unknown]
